FAERS Safety Report 10351805 (Version 3)
Quarter: 2014Q3

REPORT INFORMATION
  Report Type: Spontaneous
  Country: JP (occurrence: JP)
  Receive Date: 20140730
  Receipt Date: 20140828
  Transmission Date: 20150326
  Serious: Yes (Hospitalization, Other)
  Sender: FDA-Public Use
  Company Number: JP-MERCK-1407JPN003019

PATIENT
  Age: 73 Year
  Sex: Male

DRUGS (17)
  1. GLACTIV [Suspect]
     Active Substance: SITAGLIPTIN
     Indication: TYPE 2 DIABETES MELLITUS
     Dosage: 50 MG, ONCE A DAY
     Route: 048
     Dates: start: 201208, end: 20140217
  2. MEQUITAZINE [Concomitant]
     Active Substance: MEQUITAZINE
  3. DERMOVATE [Concomitant]
     Active Substance: CLOBETASOL
  4. ANTEBATE [Concomitant]
     Active Substance: BETAMETHASONE DIPROPIONATE
  5. MICARDIS [Concomitant]
     Active Substance: TELMISARTAN
     Dosage: UNK
     Dates: end: 20140130
  6. EURAX [Concomitant]
     Active Substance: CROTAMITON
  7. GLACTIV [Suspect]
     Active Substance: SITAGLIPTIN
     Dosage: 50 MG, ONCE A DAY
     Route: 048
     Dates: start: 201403, end: 2014
  8. FLIVAS [Concomitant]
     Active Substance: NAFTOPIDIL
     Dosage: UNK
     Dates: end: 20140130
  9. URSO [Concomitant]
     Active Substance: URSODIOL
     Dosage: UNK
     Dates: end: 20140130
  10. RINDERON VG [Concomitant]
     Active Substance: BETAMETHASONE VALERATE\GENTAMICIN SULFATE
  11. SENNOSIDES [Concomitant]
     Active Substance: SENNOSIDES
     Dosage: UNK
     Dates: end: 20140130
  12. CALBLOCK [Concomitant]
     Active Substance: AZELNIDIPINE
     Dosage: UNK
     Dates: end: 20140130
  13. CARDENALIN [Concomitant]
     Active Substance: DOXAZOSIN MESYLATE
     Dosage: UNK
     Dates: end: 20140130
  14. MUCOTRON [Concomitant]
     Dosage: UNK
     Dates: end: 20140130
  15. RINPRAL [Concomitant]
     Active Substance: EPERISONE
     Dosage: UNK
     Dates: end: 20140130
  16. ALESION [Concomitant]
     Active Substance: EPINASTINE HYDROCHLORIDE
     Dosage: UNK
     Dates: end: 20140130
  17. AMARYL [Concomitant]
     Active Substance: GLIMEPIRIDE
     Dosage: UNK
     Dates: end: 20140217

REACTIONS (2)
  - Dermatitis exfoliative [Recovered/Resolved]
  - Hepatocellular carcinoma [Unknown]

NARRATIVE: CASE EVENT DATE: 201310
